FAERS Safety Report 22344993 (Version 1)
Quarter: 2023Q2

REPORT INFORMATION
  Report Type: Spontaneous
  Country: CA (occurrence: CA)
  Receive Date: 20230519
  Receipt Date: 20230519
  Transmission Date: 20230721
  Serious: Yes (Other)
  Sender: FDA-Public Use
  Company Number: CA-BAUSCH-BL-2023-007458

PATIENT
  Age: 74 Year
  Sex: Male

DRUGS (9)
  1. ALBUTEROL [Suspect]
     Active Substance: ALBUTEROL
     Indication: Product used for unknown indication
     Route: 065
  2. ALBUTEROL [Suspect]
     Active Substance: ALBUTEROL
     Route: 065
  3. ALBUTEROL SULFATE [Suspect]
     Active Substance: ALBUTEROL SULFATE
     Indication: Product used for unknown indication
     Route: 065
  4. ACLIDINIUM BROMIDE [Suspect]
     Active Substance: ACLIDINIUM BROMIDE
     Indication: Product used for unknown indication
     Route: 065
  5. MOMETASONE FUROATE [Suspect]
     Active Substance: MOMETASONE FUROATE
     Indication: Product used for unknown indication
     Route: 065
  6. MEPOLIZUMAB [Suspect]
     Active Substance: MEPOLIZUMAB
     Indication: Asthma
     Route: 042
  7. MEPOLIZUMAB [Suspect]
     Active Substance: MEPOLIZUMAB
     Route: 042
  8. PREDNISONE [Suspect]
     Active Substance: PREDNISONE
     Indication: Product used for unknown indication
     Route: 065
  9. ZENHALE [Suspect]
     Active Substance: FORMOTEROL FUMARATE\MOMETASONE FUROATE
     Indication: Product used for unknown indication
     Dosage: AEROSOL, METERED?DOSE
     Route: 065

REACTIONS (17)
  - Asthma [Unknown]
  - Breath sounds abnormal [Unknown]
  - Bronchial obstruction [Unknown]
  - Bronchial obstruction [Unknown]
  - Dyspnoea [Unknown]
  - Ear discomfort [Unknown]
  - Ear disorder [Unknown]
  - Ear infection [Unknown]
  - Eosinophilic bronchitis [Unknown]
  - Gait disturbance [Unknown]
  - Ill-defined disorder [Unknown]
  - Pulmonary eosinophilia [Unknown]
  - Sinusitis [Unknown]
  - Sinusitis [Unknown]
  - Sputum abnormal [Unknown]
  - Cough [Unknown]
  - Therapeutic product effect incomplete [Unknown]
